FAERS Safety Report 15934812 (Version 2)
Quarter: 2021Q1

REPORT INFORMATION
  Report Type: Spontaneous
  Country: US (occurrence: US)
  Receive Date: 20190207
  Receipt Date: 20210224
  Transmission Date: 20210419
  Serious: No
  Sender: FDA-Public Use
  Company Number: US-BAUSCH-BL-2018-005619

PATIENT
  Age: 55 Year
  Sex: Male

DRUGS (5)
  1. CUPRIMINE [Suspect]
     Active Substance: PENICILLAMINE
     Indication: NEPHROLITHIASIS
     Route: 048
     Dates: start: 1979, end: 20180226
  2. CUPRIMINE [Suspect]
     Active Substance: PENICILLAMINE
     Indication: PRODUCT USE IN UNAPPROVED INDICATION
     Dosage: RE?STARTED AFTER GETTING OUT OF MEDICATION
     Route: 048
     Dates: end: 20190126
  3. ATENOLOL. [Concomitant]
     Active Substance: ATENOLOL
     Indication: PRODUCT USED FOR UNKNOWN INDICATION
  4. METFORMIN [Concomitant]
     Active Substance: METFORMIN HYDROCHLORIDE
     Indication: PRODUCT USED FOR UNKNOWN INDICATION
  5. CUPRIMINE [Suspect]
     Active Substance: PENICILLAMINE
     Dosage: RE?STARTED AFTER GETTING OUT OF MEDICATION
     Route: 048
     Dates: end: 20200114

REACTIONS (5)
  - Therapy interrupted [Unknown]
  - Product availability issue [Unknown]
  - Malaise [Not Recovered/Not Resolved]
  - Insurance issue [Unknown]
  - Product use in unapproved indication [Unknown]

NARRATIVE: CASE EVENT DATE: 1979
